FAERS Safety Report 22198089 (Version 1)
Quarter: 2023Q2

REPORT INFORMATION
  Report Type: Spontaneous
  Country: US (occurrence: US)
  Receive Date: 20230411
  Receipt Date: 20230411
  Transmission Date: 20230721
  Serious: Yes (Other)
  Sender: FDA-Public Use
  Company Number: US-ELI_LILLY_AND_COMPANY-US202303016786

PATIENT
  Age: 58 Year
  Sex: Female

DRUGS (5)
  1. INSULIN LISPRO [Suspect]
     Active Substance: INSULIN LISPRO
     Indication: Type 2 diabetes mellitus
     Dosage: UNK UNK, UNKNOWN
     Route: 065
     Dates: start: 2015
  2. INSULIN LISPRO [Suspect]
     Active Substance: INSULIN LISPRO
     Dosage: UNK UNK, UNKNOWN
     Route: 065
  3. HUMALOG [Suspect]
     Active Substance: INSULIN LISPRO
     Indication: Type 2 diabetes mellitus
     Dosage: 40 U, EACH MORNING
     Route: 065
     Dates: start: 2015
  4. HUMALOG [Suspect]
     Active Substance: INSULIN LISPRO
     Dosage: 30 U, EACH EVENING
     Route: 065
     Dates: start: 2015
  5. HUMALOG [Suspect]
     Active Substance: INSULIN LISPRO
     Dosage: 10 U, BID (MORNING AND EVENING)
     Route: 065

REACTIONS (11)
  - Cholelithiasis [Recovering/Resolving]
  - Burns third degree [Recovering/Resolving]
  - Seasonal allergy [Unknown]
  - Immunodeficiency [Unknown]
  - Cataract [Unknown]
  - Blood glucose increased [Unknown]
  - Impaired healing [Unknown]
  - Blood glucose abnormal [Unknown]
  - Rhinorrhoea [Unknown]
  - Wound secretion [Unknown]
  - Blood glucose decreased [Unknown]

NARRATIVE: CASE EVENT DATE: 20150401
